FAERS Safety Report 12429566 (Version 1)
Quarter: 2016Q2

REPORT INFORMATION
  Report Type: Spontaneous
  Country: US (occurrence: US)
  Receive Date: 20160602
  Receipt Date: 20160602
  Transmission Date: 20160815
  Serious: No
  Sender: FDA-Public Use
  Company Number: US-ACORDA-ACO_115109_2015

PATIENT
  Sex: Male

DRUGS (1)
  1. QUTENZA [Suspect]
     Active Substance: CAPSAICIN
     Indication: POST HERPETIC NEURALGIA
     Dosage: 2 DF, UNK
     Route: 065

REACTIONS (1)
  - Pain [Recovered/Resolved]
